FAERS Safety Report 13441890 (Version 1)
Quarter: 2017Q2

REPORT INFORMATION
  Report Type: Report from Study
  Country: BR (occurrence: BR)
  Receive Date: 20170413
  Receipt Date: 20170413
  Transmission Date: 20170830
  Serious: Yes (Other)
  Sender: FDA-Public Use
  Company Number: PHHY2017BR001169

PATIENT
  Sex: Female

DRUGS (1)
  1. ROSULIB [Suspect]
     Active Substance: ROSUVASTATIN
     Indication: DYSLIPIDAEMIA
     Dosage: 1 DF, QD
     Route: 048

REACTIONS (3)
  - Hypoacusis [Unknown]
  - Tinnitus [Unknown]
  - Tympanic membrane perforation [Unknown]
